FAERS Safety Report 12553587 (Version 1)
Quarter: 2016Q3

REPORT INFORMATION
  Report Type: Spontaneous
  Country: IE (occurrence: IE)
  Receive Date: 20160713
  Receipt Date: 20160713
  Transmission Date: 20161109
  Serious: Yes (Other)
  Sender: FDA-Public Use
  Company Number: IE-WATSON-2016-15040

PATIENT
  Age: 96 Year
  Sex: Male

DRUGS (2)
  1. VANCOMYCIN (UNKNOWN) [Suspect]
     Active Substance: VANCOMYCIN
     Indication: STAPHYLOCOCCAL INFECTION
     Dosage: WITH ADJUSTMENT TO RENAL DOSE
     Route: 065
  2. ORAMORPH [Interacting]
     Active Substance: MORPHINE SULFATE
     Indication: PAIN IN EXTREMITY
     Dosage: 2.5 MG, UNK
     Route: 065

REACTIONS (3)
  - Angioedema [Recovering/Resolving]
  - Anaphylactoid reaction [Recovering/Resolving]
  - Drug interaction [Recovering/Resolving]
